FAERS Safety Report 6410673-X (Version None)
Quarter: 2009Q4

REPORT INFORMATION
  Report Type: 
  Country: None (occurrence: None)
  Receive Date: 20091016
  Receipt Date: 20091006
  Transmission Date: 20100525
  Serious: Yes (Life-Threatening, Hospitalization, Other)
  Sender: FDA-Public Use
  Company Number: 232483J08USA

PATIENT
  Age: 43 Year
  Sex: Female
  Weight: 64 kg

DRUGS (3)
  1. REBIF [Suspect]
     Indication: MULTIPLE SCLEROSIS
     Dosage: 44 MCG, 3 IN 1 WEEKS, SUBCUTANEOUS
     Route: 058
     Dates: start: 20070219
  2. LEVOTHYROXINE (LEVOTHYROXINE /00068001/) [Concomitant]
  3. TYLENOL [Concomitant]

REACTIONS (12)
  - ABASIA [None]
  - BONE DISORDER [None]
  - COMA [None]
  - INTRACRANIAL PRESSURE INCREASED [None]
  - JOINT RANGE OF MOTION DECREASED [None]
  - MUSCLE SPASTICITY [None]
  - NECK INJURY [None]
  - PAIN IN EXTREMITY [None]
  - ROAD TRAFFIC ACCIDENT [None]
  - SPINAL FRACTURE [None]
  - TRAUMATIC BRAIN INJURY [None]
  - ULNAR NERVE INJURY [None]
